FAERS Safety Report 11077985 (Version 1)
Quarter: 2015Q2

REPORT INFORMATION
  Report Type: Spontaneous
  Country: US (occurrence: None)
  Receive Date: 20150429
  Receipt Date: 20150429
  Transmission Date: 20150821
  Serious: No
  Sender: FDA-Public Use
  Company Number: None

PATIENT
  Age: 66 Year
  Sex: Female
  Weight: 88.45 kg

DRUGS (4)
  1. CELECOXIB 200 MG TEVA USA [Suspect]
     Active Substance: CELECOXIB
     Indication: ARTHRITIS
     Dosage: 1 CAPSULE
     Route: 048
     Dates: start: 20150213, end: 20150424
  2. LOTREL [Concomitant]
     Active Substance: AMLODIPINE BESYLATE\BENAZEPRIL HYDROCHLORIDE
  3. CLONIDINE. [Concomitant]
     Active Substance: CLONIDINE
  4. WOMEN^S MULTI-VITAMINS AND MINERAL [Concomitant]

REACTIONS (3)
  - Diarrhoea [None]
  - Product substitution issue [None]
  - Drug effect incomplete [None]

NARRATIVE: CASE EVENT DATE: 20150428
